FAERS Safety Report 9849404 (Version 2)
Quarter: 2014Q1

REPORT INFORMATION
  Report Type: Spontaneous
  Country: ZA (occurrence: ZA)
  Receive Date: 20140128
  Receipt Date: 20140128
  Transmission Date: 20141002
  Serious: Yes (Hospitalization)
  Sender: FDA-Public Use
  Company Number: ZA-PFIZER INC-2014023033

PATIENT
  Age: 2 Year
  Sex: Female

DRUGS (1)
  1. LOMOTIL [Suspect]
     Dosage: BETWEEN 50 AND 70 TABLETS

REACTIONS (9)
  - Accidental overdose [Recovered/Resolved]
  - Toxicity to various agents [Recovered/Resolved]
  - Confusional state [Recovered/Resolved]
  - Somnolence [Recovered/Resolved]
  - Convulsion [Recovered/Resolved]
  - Vasodilatation [Recovered/Resolved]
  - Apnoea [Recovered/Resolved]
  - Bradycardia [Recovered/Resolved]
  - Miosis [Recovered/Resolved]
